FAERS Safety Report 18025037 (Version 4)
Quarter: 2022Q2

REPORT INFORMATION
  Report Type: Spontaneous
  Country: US (occurrence: US)
  Receive Date: 20200715
  Receipt Date: 20220518
  Transmission Date: 20220721
  Serious: No
  Sender: FDA-Public Use
  Company Number: US-PFIZER INC-2020268331

PATIENT
  Age: 77 Year
  Sex: Female

DRUGS (2)
  1. LATANOPROST [Suspect]
     Active Substance: LATANOPROST
     Indication: Glaucoma
     Dosage: 2 DROP, 1X/DAY (1 DROP BOTH EYES, EACH NIGHT)
     Route: 047
  2. LATANOPROST [Suspect]
     Active Substance: LATANOPROST
     Dosage: UNK
     Route: 061

REACTIONS (3)
  - Product dose omission issue [Recovered/Resolved]
  - Aphonia [Unknown]
  - Product delivery mechanism issue [Unknown]

NARRATIVE: CASE EVENT DATE: 20200710
